FAERS Safety Report 15093079 (Version 2)
Quarter: 2018Q3

REPORT INFORMATION
  Report Type: Spontaneous
  Country: US (occurrence: US)
  Receive Date: 20180629
  Receipt Date: 20180817
  Transmission Date: 20181010
  Serious: Yes (Other)
  Sender: FDA-Public Use
  Company Number: US-BAYER-2018-122764

PATIENT
  Age: 49 Year
  Sex: Female

DRUGS (2)
  1. MIRENA [Suspect]
     Active Substance: LEVONORGESTREL
     Dosage: 20 MCG/24HR, CONT
     Route: 015
     Dates: start: 20180626, end: 20180626
  2. BETADINE [Concomitant]
     Active Substance: POVIDONE-IODINE
     Dosage: 3 DF, ONCE
     Route: 061
     Dates: start: 20180626

REACTIONS (4)
  - Product use complaint [None]
  - Procedural haemorrhage [None]
  - Complication of device insertion [None]
  - Device deployment issue [None]

NARRATIVE: CASE EVENT DATE: 20180626
